FAERS Safety Report 17811646 (Version 1)
Quarter: 2020Q2

REPORT INFORMATION
  Report Type: Spontaneous
  Country: US (occurrence: US)
  Receive Date: 20200520
  Receipt Date: 20200520
  Transmission Date: 20200714
  Serious: Yes (Death)
  Sender: FDA-Public Use
  Company Number: None

PATIENT
  Age: 74 Year
  Sex: Male

DRUGS (10)
  1. FLUOXETINE [Concomitant]
     Active Substance: FLUOXETINE HYDROCHLORIDE
  2. FUROSIMIDE [Concomitant]
     Active Substance: FUROSEMIDE
  3. AUSTEDO [Suspect]
     Active Substance: DEUTETRABENAZINE
     Indication: MAJOR DEPRESSION
     Route: 048
     Dates: start: 20200415
  4. ADVAIR HFA [Concomitant]
     Active Substance: FLUTICASONE PROPIONATE\SALMETEROL XINAFOATE
  5. AMANTADINE. [Concomitant]
     Active Substance: AMANTADINE HYDROCHLORIDE
  6. ATORVASTATIN [Concomitant]
     Active Substance: ATORVASTATIN
  7. CARVEDILOL. [Concomitant]
     Active Substance: CARVEDILOL
  8. GABAPENTIN. [Concomitant]
     Active Substance: GABAPENTIN
  9. FLUTICASONE. [Concomitant]
     Active Substance: FLUTICASONE
  10. IPRATOPIUM [Concomitant]
     Active Substance: IPRATROPIUM BROMIDE

REACTIONS (5)
  - Unevaluable event [None]
  - Major depression [None]
  - Insomnia [None]
  - Stereotypy [None]
  - Mental disorder [None]
